FAERS Safety Report 9193716 (Version 13)
Quarter: 2021Q4

REPORT INFORMATION
  Report Type: Spontaneous
  Country: US (occurrence: US)
  Receive Date: 20130327
  Receipt Date: 20211013
  Transmission Date: 20220303
  Serious: Yes (Hospitalization, Other)
  Sender: FDA-Public Use
  Company Number: US-PFIZER INC-2013098151

PATIENT
  Age: 85 Year
  Sex: Female

DRUGS (3)
  1. LYRICA [Suspect]
     Active Substance: PREGABALIN
     Indication: Radiculopathy
     Dosage: 50 MG, 2X/DAY
     Route: 048
  2. LYRICA [Suspect]
     Active Substance: PREGABALIN
     Indication: Neuralgia
  3. LYRICA [Suspect]
     Active Substance: PREGABALIN
     Indication: Fibromyalgia

REACTIONS (12)
  - COVID-19 [Unknown]
  - Myocardial infarction [Recovered/Resolved]
  - Nervousness [Unknown]
  - Nasopharyngitis [Unknown]
  - Ear discomfort [Unknown]
  - Pain [Unknown]
  - Anxiety [Unknown]
  - Hypoacusis [Unknown]
  - Amnesia [Unknown]
  - Alopecia [Unknown]
  - Feeling abnormal [Unknown]
  - Emotional disorder [Unknown]

NARRATIVE: CASE EVENT DATE: 20200101
